FAERS Safety Report 20649942 (Version 1)
Quarter: 2022Q1

REPORT INFORMATION
  Report Type: Spontaneous
  Country: CN (occurrence: CN)
  Receive Date: 20220329
  Receipt Date: 20220329
  Transmission Date: 20220423
  Serious: Yes (Other)
  Sender: FDA-Public Use
  Company Number: CN-BAXTER-2022BAX006694

PATIENT
  Age: 71 Year
  Sex: Female
  Weight: 65 kg

DRUGS (4)
  1. CYCLOPHOSPHAMIDE [Suspect]
     Active Substance: CYCLOPHOSPHAMIDE
     Indication: Breast cancer female
     Dosage: GTT CYCLOPHOSPHAMIDE FOR INJECTION (1G) DILUTED WITH DILUENT 0.9% SODIUM CHLORIDE INJECTION 100ML
     Route: 041
     Dates: start: 20220209, end: 20220209
  2. SODIUM CHLORIDE [Suspect]
     Active Substance: SODIUM CHLORIDE
     Indication: Medication dilution
     Dosage: GTT CYCLOPHOSPHAMIDE FOR INJECTION (1G) DILUTED WITH DILUENT 0.9% SODIUM CHLORIDE INJECTION 100ML
     Route: 041
     Dates: start: 20220209, end: 20220209
  3. DEXTROSE [Suspect]
     Active Substance: DEXTROSE
     Indication: Medication dilution
     Dosage: DOXORUBICIN HYDROCHLORIDE LIPOSOME INJECTION (51MG) DILUTED WITH DILUENT 5% GLUCOSE INJECTION (250ML
     Route: 041
     Dates: start: 20220209, end: 20220209
  4. DOXORUBICIN HYDROCHLORIDE [Suspect]
     Active Substance: DOXORUBICIN HYDROCHLORIDE
     Indication: Breast cancer female
     Dosage: DOXORUBICIN HYDROCHLORIDE LIPOSOME INJECTION (51MG) DILUTED WITH DILUENT 5% GLUCOSE INJECTION (250ML
     Route: 041
     Dates: start: 20220209, end: 20220209

REACTIONS (1)
  - Myelosuppression [Recovering/Resolving]

NARRATIVE: CASE EVENT DATE: 20220302
